FAERS Safety Report 4956233-9 (Version None)
Quarter: 2006Q1

REPORT INFORMATION
  Report Type: 
  Country: None (occurrence: None)
  Receive Date: 20060329
  Receipt Date: 20060222
  Transmission Date: 20060701
  Serious: Yes (Hospitalization)
  Sender: FDA-Public Use
  Company Number: FR-RB-2829-2006

PATIENT
  Age: 41 Year
  Sex: Male

DRUGS (10)
  1. BUPRENORPHINE HCL [Suspect]
     Indication: DRUG USE FOR UNKNOWN INDICATION
     Route: 048
  2. BACTRIM [Suspect]
     Indication: DRUG USE FOR UNKNOWN INDICATION
     Route: 048
  3. FOLIC ACID [Suspect]
     Indication: DRUG USE FOR UNKNOWN INDICATION
     Route: 048
  4. RITONAVIR [Suspect]
     Route: 048
     Dates: start: 20051001, end: 20051123
  5. RITONAVIR [Suspect]
     Route: 048
     Dates: start: 20060106
  6. COMBIVIR [Suspect]
     Indication: HIV INFECTION
     Route: 048
     Dates: start: 20051001, end: 20051123
  7. COMBIVIR [Suspect]
     Route: 048
     Dates: start: 20060106
  8. FOSAMPRENAVIR [Suspect]
     Indication: HIV INFECTION
     Route: 048
     Dates: start: 20051001, end: 20051123
  9. FOSAMPRENAVIR [Suspect]
     Route: 048
     Dates: start: 20060106
  10. ACETAMINOPHEN [Concomitant]
     Indication: DRUG USE FOR UNKNOWN INDICATION
     Dosage: DOSAGE UNKNOWN
     Route: 065

REACTIONS (6)
  - CALCULUS URETHRAL [None]
  - CALCULUS URINARY [None]
  - PNEUMOTHORAX [None]
  - PULMONARY NECROSIS [None]
  - RENAL PAIN [None]
  - SEPTIC SHOCK [None]
